FAERS Safety Report 17884374 (Version 3)
Quarter: 2020Q3

REPORT INFORMATION
  Report Type: Spontaneous
  Country: US (occurrence: US)
  Receive Date: 20200611
  Receipt Date: 20200706
  Transmission Date: 20201103
  Serious: No
  Sender: FDA-Public Use
  Company Number: US-PFIZER INC-2020223705

PATIENT
  Age: 49 Year
  Sex: Female
  Weight: 74.84 kg

DRUGS (2)
  1. NALBUPHINE HYDROCHLORIDE. [Suspect]
     Active Substance: NALBUPHINE HYDROCHLORIDE
     Dosage: 20 MG, AS NEEDED (3 TIMES A DAY)
     Route: 058
     Dates: start: 2005, end: 202003
  2. NALBUPHINE HYDROCHLORIDE. [Suspect]
     Active Substance: NALBUPHINE HYDROCHLORIDE
     Indication: MIGRAINE
     Dosage: 10 MG/ML, AS NEEDED (4 TIMES DAILY)
     Dates: start: 2005

REACTIONS (2)
  - Intentional product misuse [Unknown]
  - Medication overuse headache [Not Recovered/Not Resolved]

NARRATIVE: CASE EVENT DATE: 201911
